FAERS Safety Report 5709386-9 (Version None)
Quarter: 2008Q2

REPORT INFORMATION
  Report Type: 
  Country: None (occurrence: None)
  Receive Date: 20080418
  Receipt Date: 20080417
  Transmission Date: 20081010
  Serious: Yes (Death, Other)
  Sender: FDA-Public Use
  Company Number: SK-BRISTOL-MYERS SQUIBB COMPANY-14140313

PATIENT
  Age: 15 Year
  Sex: Female

DRUGS (7)
  1. AMPHOTERICIN B [Suspect]
     Indication: ACUTE MYELOID LEUKAEMIA
     Route: 042
     Dates: start: 20080319, end: 20080319
  2. DIAZEPAM [Suspect]
  3. PYRIDOXINE [Suspect]
  4. TRIMETHOPRIM + SULFAMETHOXAZOLE [Concomitant]
     Dosage: BISMORAL 480
     Route: 048
  5. PARALEN [Concomitant]
     Dosage: PARACETAMOL
     Route: 048
  6. HYDROCORTISONE [Concomitant]
     Route: 042
  7. PENCLEN [Concomitant]
     Route: 048

REACTIONS (13)
  - ABDOMINAL PAIN UPPER [None]
  - BODY TEMPERATURE INCREASED [None]
  - CARDIAC ARREST [None]
  - CARDIAC FAILURE [None]
  - CIRCULATORY COLLAPSE [None]
  - HYPOKALAEMIA [None]
  - HYPOTENSION [None]
  - INFUSION RELATED REACTION [None]
  - LOSS OF CONSCIOUSNESS [None]
  - MUSCLE SPASMS [None]
  - PAIN IN EXTREMITY [None]
  - PULSE PRESSURE DECREASED [None]
  - TACHYCARDIA [None]
